FAERS Safety Report 8684024 (Version 7)
Quarter: 2016Q3

REPORT INFORMATION
  Report Type: Spontaneous
  Country: US (occurrence: US)
  Receive Date: 20120726
  Receipt Date: 20160808
  Transmission Date: 20161109
  Serious: Yes (Hospitalization, Other)
  Sender: FDA-Public Use
  Company Number: US-009507513-1207USA005636

PATIENT
  Sex: Female
  Weight: 68.48 kg

DRUGS (11)
  1. ALENDRONATE SODIUM. [Suspect]
     Active Substance: ALENDRONATE SODIUM
     Indication: OSTEOPOROSIS PROPHYLAXIS
  2. FOSAMAX [Suspect]
     Active Substance: ALENDRONATE SODIUM
     Indication: OSTEOPOROSIS PROPHYLAXIS
     Dosage: 70 MG, UNKNOWN
     Route: 048
     Dates: start: 200512, end: 200703
  3. FOSAMAX PLUS D [Suspect]
     Active Substance: ALENDRONATE SODIUM\CHOLECALCIFEROL
     Indication: OSTEOPOROSIS
     Dosage: 70 MG, UNK
     Route: 048
     Dates: start: 200512, end: 200601
  4. ALENDRONATE SODIUM. [Suspect]
     Active Substance: ALENDRONATE SODIUM
     Indication: OSTEOPOROSIS PROPHYLAXIS
  5. FOSAMAX [Suspect]
     Active Substance: ALENDRONATE SODIUM
     Indication: OSTEOPOROSIS
     Dosage: 35 MG, UNK
     Route: 048
     Dates: start: 2007
  6. FOSAMAX [Suspect]
     Active Substance: ALENDRONATE SODIUM
     Dosage: UNK UNK, UNKNOWN
     Route: 048
     Dates: start: 2002, end: 2012
  7. ALENDRONATE SODIUM. [Suspect]
     Active Substance: ALENDRONATE SODIUM
     Indication: OSTEOPOROSIS
     Dosage: 70 MG, UNKNOWN
     Route: 048
     Dates: start: 201108, end: 201109
  8. CENTRUM SILVER [Concomitant]
     Active Substance: MINERALS\VITAMINS
     Dosage: UNK, QD
     Route: 065
     Dates: start: 1975
  9. ALENDRONATE SODIUM. [Suspect]
     Active Substance: ALENDRONATE SODIUM
     Indication: OSTEOPOROSIS
     Dosage: 70 MG, UNKNOWN
     Route: 048
     Dates: start: 200802, end: 200906
  10. ALENDRONATE SODIUM. [Suspect]
     Active Substance: ALENDRONATE SODIUM
     Indication: OSTEOPOROSIS PROPHYLAXIS
  11. ALENDRONATE SODIUM. [Suspect]
     Active Substance: ALENDRONATE SODIUM
     Indication: OSTEOPOROSIS
     Dosage: 70 MG, UNKNOWN
     Route: 048
     Dates: start: 201110, end: 201206

REACTIONS (28)
  - Intramedullary rod insertion [Unknown]
  - Infection [Unknown]
  - Gastrooesophageal reflux disease [Unknown]
  - Fracture reduction [Unknown]
  - Bone infarction [Unknown]
  - Restless legs syndrome [Unknown]
  - Macular degeneration [Unknown]
  - Cough [Unknown]
  - Femur fracture [Unknown]
  - Joint injury [Unknown]
  - Asthma [Unknown]
  - Cardiac murmur [Unknown]
  - Pulmonary embolism [Unknown]
  - Dyslipidaemia [Unknown]
  - Loss of libido [Unknown]
  - Hand fracture [Unknown]
  - Vitamin D decreased [Unknown]
  - Ankle fracture [Unknown]
  - Oedema peripheral [Unknown]
  - Femur fracture [Unknown]
  - Hypertension [Unknown]
  - Hysterectomy [Unknown]
  - Arthritis [Unknown]
  - Chronic obstructive pulmonary disease [Not Recovered/Not Resolved]
  - Kyphosis [Unknown]
  - Contusion [Unknown]
  - Cyst [Unknown]
  - Xerosis [Unknown]

NARRATIVE: CASE EVENT DATE: 2005
